FAERS Safety Report 5242054-9 (Version None)
Quarter: 2007Q1

REPORT INFORMATION
  Report Type: 
  Country: None (occurrence: None)
  Receive Date: 20070212
  Receipt Date: 20070202
  Transmission Date: 20070707
  Serious: Yes (Death)
  Sender: FDA-Public Use
  Company Number: 010479

PATIENT
  Age: 52 Year
  Sex: Female

DRUGS (3)
  1. AYGESTIN [Suspect]
     Indication: MENORRHAGIA
     Dosage: TABLET, ORAL
     Route: 048
     Dates: start: 20050601, end: 20061101
  2. ASPIRIN [Concomitant]
  3. NEXIUM [Concomitant]

REACTIONS (1)
  - MYOCARDIAL INFARCTION [None]
